FAERS Safety Report 9604715 (Version 2)
Quarter: 2014Q4

REPORT INFORMATION
  Report Type: Spontaneous
  Country: US (occurrence: US)
  Receive Date: 20131008
  Receipt Date: 20141210
  Transmission Date: 20150529
  Serious: No
  Sender: FDA-Public Use
  Company Number: US-PFIZER INC-2013284179

PATIENT
  Age: 76 Year
  Sex: Female

DRUGS (2)
  1. INLYTA [Suspect]
     Active Substance: AXITINIB
     Indication: CARCINOMA IN SITU OF SKIN
     Dosage: 5 MG, 2X/DAY (ONE)
     Route: 048
     Dates: start: 20130813
  2. INLYTA [Suspect]
     Active Substance: AXITINIB
     Indication: METASTATIC NEOPLASM

REACTIONS (3)
  - Off label use [Unknown]
  - Diarrhoea [Unknown]
  - Weight decreased [Unknown]
